FAERS Safety Report 20462506 (Version 2)
Quarter: 2022Q2

REPORT INFORMATION
  Report Type: Report from Study
  Country: US (occurrence: US)
  Receive Date: 20220211
  Receipt Date: 20220411
  Transmission Date: 20220721
  Serious: Yes (Life-Threatening, Hospitalization, Other)
  Sender: FDA-Public Use
  Company Number: US-JAZZ-2021-US-020278

PATIENT
  Age: 14 Year
  Sex: Male
  Weight: 78 kg

DRUGS (8)
  1. ASPARAGINASE ERWINIA CHRYSANTHEMI [Suspect]
     Active Substance: ASPARAGINASE ERWINIA CHRYSANTHEMI
     Dosage: 3XWEEKLY PER 2W COURSE
     Route: 042
     Dates: start: 20210510, end: 20210903
  2. ASPARAGINASE ERWINIA CHRYSANTHEMI [Suspect]
     Active Substance: ASPARAGINASE ERWINIA CHRYSANTHEMI
     Dosage: 25 MILLIGRAM, 3XWEEKLY PER 2W COURSE
     Route: 042
     Dates: start: 20211011
  3. ASPARAGINASE ERWINIA CHRYSANTHEMI [Suspect]
     Active Substance: ASPARAGINASE ERWINIA CHRYSANTHEMI
     Dosage: 50 MILLIGRAM, 3XWEEKLY PER 2W COURSE
     Route: 042
     Dates: end: 20211022
  4. FOSAPREPITANT [Concomitant]
     Active Substance: FOSAPREPITANT
     Dosage: 150 MILLIGRAM , QOD, MONDAY-WEDNESDAY-FRIDAY
     Route: 042
     Dates: start: 20211015, end: 20211022
  5. HYDROXYZINE [Concomitant]
     Active Substance: HYDROXYZINE HYDROCHLORIDE
     Dosage: 150 MILLIGRAM, QOD, MONDAY-WEDNESDAY-FRIDAY
     Route: 042
     Dates: start: 20211015, end: 20211022
  6. TYLENOL [Concomitant]
     Active Substance: ACETAMINOPHEN
     Dosage: 650 MILLIGRAM, SINGLE
     Route: 048
     Dates: start: 20211015, end: 20211022
  7. PALONOSETRON [Concomitant]
     Active Substance: PALONOSETRON
     Dosage: 1.5 MILLIGRAM,, QOD, MONDAY-WEDNESDAY-FRIDAY
     Route: 042
     Dates: start: 20211015, end: 20211022
  8. VINCRISTINE [Concomitant]
     Active Substance: VINCRISTINE
     Dosage: 2 MILLIGRAM, SINGLE
     Route: 042
     Dates: start: 20211018, end: 20211018

REACTIONS (2)
  - Pancreatitis [Recovered/Resolved]
  - Respiratory failure [Recovered/Resolved with Sequelae]

NARRATIVE: CASE EVENT DATE: 20211023
